FAERS Safety Report 25263701 (Version 1)
Quarter: 2025Q2

REPORT INFORMATION
  Report Type: Spontaneous
  Country: GB (occurrence: GB)
  Receive Date: 20250502
  Receipt Date: 20250502
  Transmission Date: 20250717
  Serious: Yes (Other)
  Sender: pharmaAND
  Company Number: None

PATIENT
  Age: 75 Year
  Sex: Female

DRUGS (23)
  1. PEGINTERFERON ALFA-2A [Suspect]
     Active Substance: PEGINTERFERON ALFA-2A
     Indication: Product used for unknown indication
  2. LANSOPRAZOLE [Concomitant]
     Active Substance: LANSOPRAZOLE
  3. Nefopam 30mg tablets [Concomitant]
  4. TRELEGY ELLIPTA [Concomitant]
     Active Substance: FLUTICASONE FUROATE\UMECLIDINIUM BROMIDE\VILANTEROL TRIFENATATE
  5. ELOCON [Concomitant]
     Active Substance: MOMETASONE FUROATE
  6. COTRIMOXAZOLE [Concomitant]
     Active Substance: SULFAMETHOXAZOLE\TRIMETHOPRIM
  7. ATORVASTATIN [Concomitant]
     Active Substance: ATORVASTATIN
  8. Aveeno lotion [Concomitant]
  9. Latanoprost 50micrograms/ml eye drops [Concomitant]
  10. DOXYCYCLINE [Concomitant]
     Active Substance: DOXYCYCLINE
     Dates: end: 20250328
  11. PREDNISOLONE [Concomitant]
     Active Substance: PREDNISOLONE
  12. CARBOCYSTEINE [Concomitant]
     Active Substance: CARBOCYSTEINE
  13. AZITHROMYCIN [Concomitant]
     Active Substance: AZITHROMYCIN
  14. ASPIRIN [Concomitant]
     Active Substance: ASPIRIN
  15. BISOPROLOL [Concomitant]
     Active Substance: BISOPROLOL
  16. CALCIUM CARBONATE\CHOLECALCIFEROL [Concomitant]
     Active Substance: CALCIUM CARBONATE\CHOLECALCIFEROL
  17. ALBUTEROL [Concomitant]
     Active Substance: ALBUTEROL
  18. DOCUSATE [Concomitant]
     Active Substance: DOCUSATE
  19. Macrogol compound oral powder [Concomitant]
  20. GABAPENTIN [Concomitant]
     Active Substance: GABAPENTIN
  21. DERMOL [Concomitant]
     Active Substance: BENZALKONIUM CHLORIDE\CHLORHEXIDINE HYDROCHLORIDE\ISOPROPYL MYRISTATE\PARAFFIN
  22. Dermax [Concomitant]
  23. ACETAMINOPHEN [Concomitant]
     Active Substance: ACETAMINOPHEN

REACTIONS (1)
  - Pulmonary embolism [Recovered/Resolved]
